FAERS Safety Report 10074692 (Version 2)
Quarter: 2016Q3

REPORT INFORMATION
  Report Type: Report from Study
  Country: FR (occurrence: FR)
  Receive Date: 20140414
  Receipt Date: 20160909
  Transmission Date: 20161108
  Serious: Yes (Death, Hospitalization)
  Sender: FDA-Public Use
  Company Number: FR-ROCHE-1378366

PATIENT
  Sex: Female

DRUGS (4)
  1. CORTANCYL [Concomitant]
     Active Substance: PREDNISONE
     Route: 065
  2. METHOTREXATE. [Concomitant]
     Active Substance: METHOTREXATE
  3. RITUXIMAB [Suspect]
     Active Substance: RITUXIMAB
     Indication: RHEUMATOID ARTHRITIS
     Route: 042
     Dates: start: 20070807
  4. LEFLUNOMIDE. [Concomitant]
     Active Substance: LEFLUNOMIDE

REACTIONS (10)
  - Fall [Unknown]
  - Lymphoproliferative disorder [Unknown]
  - Pulmonary embolism [Fatal]
  - Fall [Fatal]
  - Cholestasis [Unknown]
  - Foot deformity [Unknown]
  - Pelvic fracture [Not Recovered/Not Resolved]
  - Femur fracture [Fatal]
  - Iron deficiency anaemia [Recovered/Resolved]
  - Urinary tract infection [Recovered/Resolved]

NARRATIVE: CASE EVENT DATE: 20071001
